FAERS Safety Report 10223770 (Version 6)
Quarter: 2016Q4

REPORT INFORMATION
  Report Type: Report from Study
  Country: US (occurrence: US)
  Receive Date: 20140609
  Receipt Date: 20161102
  Transmission Date: 20170206
  Serious: Yes (Hospitalization, Other)
  Sender: FDA-Public Use
  Company Number: US-SA-2014SA072284

PATIENT
  Age: 32 Year
  Sex: Female

DRUGS (5)
  1. FABRAZYME [Suspect]
     Active Substance: AGALSIDASE BETA
     Indication: FABRY^S DISEASE
     Route: 041
     Dates: start: 20050107, end: 2010
  2. REPLAGAL [Concomitant]
     Active Substance: AGALSIDASE ALFA
  3. FABRAZYME [Suspect]
     Active Substance: AGALSIDASE BETA
     Indication: FABRY^S DISEASE
     Route: 041
     Dates: start: 2011, end: 20140321
  4. FABRAZYME [Suspect]
     Active Substance: AGALSIDASE BETA
     Indication: FABRY^S DISEASE
     Route: 041
  5. WELLBUTRIN [Concomitant]
     Active Substance: BUPROPION HYDROCHLORIDE

REACTIONS (10)
  - Fall [Unknown]
  - Encephalopathy [Unknown]
  - Muscle twitching [Unknown]
  - Tremor [Unknown]
  - Mental impairment [Unknown]
  - Loss of consciousness [Unknown]
  - Seizure [Unknown]
  - Lower limb fracture [Recovering/Resolving]
  - Diarrhoea [Unknown]
  - Vomiting [Unknown]

NARRATIVE: CASE EVENT DATE: 201405
